FAERS Safety Report 24977305 (Version 2)
Quarter: 2025Q1

REPORT INFORMATION
  Report Type: Spontaneous
  Country: IT (occurrence: IT)
  Receive Date: 20250217
  Receipt Date: 20250228
  Transmission Date: 20250409
  Serious: Yes (Death)
  Sender: SAMSUNG BIOEPIS
  Company Number: IT-SAMSUNG BIOEPIS-SB-2025-05901

PATIENT
  Sex: Female

DRUGS (7)
  1. TRASTUZUMAB [Suspect]
     Active Substance: TRASTUZUMAB
     Indication: HER2 positive breast cancer
     Dosage: COMPLETED ONLY 12 CYCLES OF ADJUVANT SETTING;?4 3-WEEK CYCLES OF TRASTUZUMAB + PERTUZUMAB + STANDARD
     Dates: start: 20180101, end: 20230831
  2. TRASTUZUMAB [Suspect]
     Active Substance: TRASTUZUMAB
     Dosage: COMPLETED ONLY 12 CYCLES OF ADJUVANT SETTING;?4 3-WEEK CYCLES OF TRASTUZUMAB + PERTUZUMAB + STANDARD
     Dates: start: 20180101, end: 20230831
  3. PERTUZUMAB [Suspect]
     Active Substance: PERTUZUMAB
     Indication: HER2 positive breast cancer
     Dosage: COMPLETED ONLY 12 CYCLES OF ADJUVANT SETTING;?4 3-WEEK CYCLES OF TRASTUZUMAB + PERTUZUMAB + STANDARD
     Dates: start: 20180101, end: 20230831
  4. PERTUZUMAB [Suspect]
     Active Substance: PERTUZUMAB
     Dosage: COMPLETED ONLY 12 CYCLES OF ADJUVANT SETTING;?4 3-WEEK CYCLES OF TRASTUZUMAB + PERTUZUMAB + STANDARD
     Dates: start: 20180101, end: 20230831
  5. PACLITAXEL [Suspect]
     Active Substance: PACLITAXEL
     Indication: HER2 positive breast cancer
     Dosage: 4 3-WEEK CYCLES OF TRASTUZUMAB + PERTUZUMAB + STANDARD CHEMOTHERAPY WITH PACLITAXEL;?1 CYCLE FOR 3 A
     Dates: start: 20180101, end: 20230831
  6. EPIRUBICIN [Suspect]
     Active Substance: EPIRUBICIN
     Indication: HER2 positive breast cancer
     Dates: start: 20180101, end: 20230831
  7. CYCLOPHOSPHAMIDE [Suspect]
     Active Substance: CYCLOPHOSPHAMIDE
     Indication: HER2 positive breast cancer
     Dates: start: 20180101, end: 20230831

REACTIONS (1)
  - Death [Fatal]
